FAERS Safety Report 9287809 (Version 1)
Quarter: 2013Q2

REPORT INFORMATION
  Report Type: Spontaneous
  Country: US (occurrence: US)
  Receive Date: 20130514
  Receipt Date: 20130514
  Transmission Date: 20140414
  Serious: No
  Sender: FDA-Public Use
  Company Number: US-PFIZER INC-2013147084

PATIENT
  Age: 59 Year
  Sex: Female

DRUGS (6)
  1. EFFEXOR XR [Suspect]
     Dosage: UNK
  2. EFFEXOR [Suspect]
     Dosage: UNK
  3. SKELAXIN [Suspect]
     Dosage: UNK
  4. ENALAPRIL [Suspect]
     Dosage: UNK
  5. CLONIDINE [Suspect]
     Dosage: UNK
  6. LAMICTAL [Suspect]
     Dosage: UNK

REACTIONS (1)
  - Drug hypersensitivity [Unknown]
